FAERS Safety Report 9363778 (Version 2)
Quarter: 2013Q3

REPORT INFORMATION
  Report Type: Report from Study
  Country: CA (occurrence: CA)
  Receive Date: 20130624
  Receipt Date: 20130705
  Transmission Date: 20140515
  Serious: Yes (Other)
  Sender: FDA-Public Use
  Company Number: CA-ROCHE-1237470

PATIENT
  Age: 70 Year
  Sex: Female
  Weight: 73 kg

DRUGS (11)
  1. TOCILIZUMAB [Suspect]
     Indication: RHEUMATOID ARTHRITIS
     Dosage: DATE OF LAST DOSE PRIOR TO SAE 30/OCT/2013
     Route: 042
     Dates: start: 20120502
  2. TOCILIZUMAB [Suspect]
     Route: 042
     Dates: start: 20130122, end: 20130130
  3. TOCILIZUMAB [Suspect]
     Route: 065
     Dates: start: 20121003
  4. TOCILIZUMAB [Suspect]
     Route: 065
     Dates: start: 20121127
  5. TOCILIZUMAB [Suspect]
     Route: 065
     Dates: start: 20121224
  6. TOCILIZUMAB [Suspect]
     Dosage: DOSE DECREASED TO 4 MG/KG
     Route: 065
     Dates: start: 20130122
  7. TOCILIZUMAB [Suspect]
     Route: 042
     Dates: start: 20120808
  8. METHOTREXATE [Concomitant]
     Route: 065
     Dates: start: 20121028, end: 20121205
  9. FOLIC ACID [Concomitant]
     Dosage: DOSAGE FREQUENCY 4 DAYS PER WEEK
     Route: 065
     Dates: start: 20121008, end: 201212
  10. PLAQUENIL [Concomitant]
     Route: 065
     Dates: start: 20100309
  11. PLAQUENIL [Concomitant]
     Route: 048

REACTIONS (1)
  - Hepatic pain [Recovered/Resolved]
